FAERS Safety Report 11727771 (Version 1)
Quarter: 2015Q4

REPORT INFORMATION
  Report Type: Spontaneous
  Country: IT (occurrence: IT)
  Receive Date: 20151112
  Receipt Date: 20151112
  Transmission Date: 20160304
  Serious: Yes (Hospitalization, Other)
  Sender: FDA-Public Use
  Company Number: IT-CELGENE-ITA-2015104938

PATIENT
  Age: 80 Year
  Sex: Female

DRUGS (4)
  1. PREDNISONE. [Concomitant]
     Active Substance: PREDNISONE
     Route: 048
     Dates: start: 20150615, end: 20150717
  2. PREDNISONE. [Concomitant]
     Active Substance: PREDNISONE
     Indication: PLASMA CELL MYELOMA
     Route: 048
     Dates: start: 20150323, end: 20150607
  3. THALIDOMIDE [Suspect]
     Active Substance: THALIDOMIDE
     Route: 048
     Dates: start: 20150615, end: 20150717
  4. THALIDOMIDE [Suspect]
     Active Substance: THALIDOMIDE
     Indication: PLASMA CELL MYELOMA
     Route: 048
     Dates: start: 20150323, end: 20150607

REACTIONS (8)
  - Apathy [Recovering/Resolving]
  - Hyponatraemia [Unknown]
  - Adverse drug reaction [Recovering/Resolving]
  - Endocarditis [Unknown]
  - Neuropathy peripheral [Recovering/Resolving]
  - Speech disorder [Recovering/Resolving]
  - Dissociation [Recovering/Resolving]
  - Cardiac failure [Unknown]

NARRATIVE: CASE EVENT DATE: 20150718
